FAERS Safety Report 9493361 (Version 2)
Quarter: 2013Q3

REPORT INFORMATION
  Report Type: Report from Study
  Country: JP (occurrence: JP)
  Receive Date: 20130902
  Receipt Date: 20130902
  Transmission Date: 20140515
  Serious: Yes (Hospitalization, Other)
  Sender: FDA-Public Use
  Company Number: PHHO2011JP06731

PATIENT
  Age: 78 Year
  Sex: Male
  Weight: 63 kg

DRUGS (25)
  1. ALISKIREN [Suspect]
     Indication: CARDIOVASCULAR DISORDER
     Route: 048
     Dates: start: 20080714
  2. ALISKIREN [Suspect]
     Route: 048
     Dates: start: 20080811, end: 20110617
  3. ALISKIREN [Suspect]
     Route: 048
     Dates: start: 20110927, end: 20111219
  4. ALISKIREN [Suspect]
     Route: 048
     Dates: start: 20111220, end: 20111223
  5. EQUA [Suspect]
     Indication: TYPE 2 DIABETES MELLITUS
     Dosage: 100 MG, DAILY
     Route: 048
     Dates: start: 20100716, end: 20110518
  6. EQUA [Suspect]
     Dosage: 100 MG, DAILY
     Route: 048
     Dates: start: 20110531
  7. ZYLORIC [Suspect]
     Dosage: 100 MG, DAILY
     Route: 048
     Dates: start: 20080213, end: 20111220
  8. KLARICID [Suspect]
     Indication: INFECTION PROPHYLAXIS
     Dosage: 200 MG, DAILY
     Route: 048
     Dates: start: 20090706
  9. ERYTHROCIN                              /CAN/ [Concomitant]
     Dosage: 2 G, UNK
     Route: 048
     Dates: start: 20111026
  10. MICARDIS [Concomitant]
     Dosage: 40 MG, DAILY
     Route: 048
     Dates: start: 20050218
  11. NORVASC [Concomitant]
     Dosage: 5 MG, UNK
     Route: 048
     Dates: start: 20090106
  12. NORVASC [Concomitant]
     Dosage: 2.5 UNK, UNK
  13. NOVOLIN N [Concomitant]
     Dosage: 22 IU, UNK
     Route: 058
     Dates: start: 20120424
  14. HARNAL D [Concomitant]
     Dosage: 0.2 MG, UNK
     Route: 048
     Dates: start: 20111115
  15. NESP [Concomitant]
     Dosage: 60 UG, UNK
  16. GLIMICRON [Concomitant]
     Indication: TYPE 2 DIABETES MELLITUS
     Dosage: 20 MG, DAILY
     Route: 048
     Dates: start: 20050803, end: 20111220
  17. LIPITOR [Concomitant]
     Dosage: 10 MG, UNK
     Route: 048
     Dates: start: 20051125, end: 20111220
  18. MUCODYNE [Concomitant]
     Dosage: 1500 MG, UNK
     Route: 048
     Dates: start: 20050502
  19. WARFARIN POTASSIUM [Concomitant]
     Dosage: 2 MG/1MG/0.8 MG, QD
     Route: 048
     Dates: start: 20110301, end: 20110708
  20. XALATAN [Concomitant]
     Route: 047
     Dates: start: 20070803
  21. FOLIAMIN [Concomitant]
     Dosage: 10 MG, QD
     Route: 048
     Dates: start: 20101221, end: 20110519
  22. FOLIAMIN [Concomitant]
     Dosage: 10 MG, QD
     Route: 048
     Dates: start: 20110531, end: 20111024
  23. ERYTHROCIN [Concomitant]
     Indication: PROPHYLAXIS AGAINST DIARRHOEA
     Dosage: 2 G, UNK
     Route: 048
     Dates: start: 20111026
  24. HARNAL [Concomitant]
     Dosage: 0.2 MG, UNK
     Route: 048
     Dates: start: 20111115
  25. MIYA-BM [Concomitant]
     Indication: PROPHYLAXIS AGAINST DIARRHOEA
     Dosage: 3 G, UNK
     Route: 048
     Dates: start: 20110907

REACTIONS (7)
  - Colon cancer [Recovered/Resolved]
  - Cholecystitis acute [Recovered/Resolved]
  - Large intestine polyp [Recovered/Resolved]
  - Pneumonia [Recovered/Resolved]
  - Renal impairment [Not Recovered/Not Resolved]
  - Diabetes mellitus [Recovered/Resolved]
  - Haemangioma of liver [Not Recovered/Not Resolved]
